FAERS Safety Report 8324765-1 (Version None)
Quarter: 2012Q2

REPORT INFORMATION
  Report Type: 
  Country: None (occurrence: None)
  Receive Date: 20120501
  Receipt Date: 20120426
  Transmission Date: 20120825
  Serious: Yes (Hospitalization)
  Sender: FDA-Public Use
  Company Number: PHHY2011AU48065

PATIENT
  Sex: Female

DRUGS (9)
  1. EFFEXOR [Concomitant]
     Dosage: 525 MG, QD
  2. CLOZARIL [Suspect]
     Dosage: 75 MG DAILY
     Dates: start: 20090721, end: 20120314
  3. VALPROATE SODIUM [Concomitant]
     Dosage: 500 MG, BID
  4. DIAZEPAM [Concomitant]
     Dosage: 10 MG, TID
  5. ABILIFY [Concomitant]
     Dosage: 15 MG, QD
  6. CLOZARIL [Suspect]
     Dosage: 75 MG / DAY
     Dates: start: 20120418
  7. ESTRADERM [Concomitant]
     Dosage: MX 50 PATCH  2 PATCHES EVERY 3 DAYS
  8. LEXAPRO [Concomitant]
     Dosage: 30 MG, QD
  9. SAPHRIS [Concomitant]

REACTIONS (9)
  - PARANOIA [None]
  - APATHY [None]
  - ILLUSION [None]
  - HALLUCINATION, AUDITORY [None]
  - DISTURBANCE IN SOCIAL BEHAVIOUR [None]
  - SELF-INJURIOUS IDEATION [None]
  - SCHIZOPHRENIA [None]
  - PSYCHOTIC DISORDER [None]
  - AGITATION [None]
